FAERS Safety Report 23552806 (Version 2)
Quarter: 2024Q1

REPORT INFORMATION
  Report Type: Spontaneous
  Country: JP (occurrence: JP)
  Receive Date: 20240222
  Receipt Date: 20240314
  Transmission Date: 20240410
  Serious: Yes (Hospitalization, Other)
  Sender: FDA-Public Use
  Company Number: JP-MYLANLABS-2024M1015862

PATIENT
  Age: 47 Year
  Sex: Male

DRUGS (1)
  1. CYCLOSPORINE [Suspect]
     Active Substance: CYCLOSPORINE
     Indication: Proteinuria
     Route: 065

REACTIONS (3)
  - Renal impairment [Unknown]
  - Condition aggravated [Unknown]
  - Osteonecrosis [Unknown]
